FAERS Safety Report 8289498-9 (Version None)
Quarter: 2012Q2

REPORT INFORMATION
  Report Type: 
  Country: None (occurrence: None)
  Receive Date: 20120417
  Receipt Date: 20120410
  Transmission Date: 20120825
  Serious: Yes (Death)
  Sender: FDA-Public Use
  Company Number: DE-ASTELLAS-2012EU002540

PATIENT
  Sex: Female
  Weight: 59 kg

DRUGS (14)
  1. FUROSEMIDE [Concomitant]
     Dosage: UNK
     Route: 065
     Dates: start: 20110715, end: 20110721
  2. LINEZOLID [Concomitant]
     Dosage: UNK
     Route: 065
     Dates: start: 20110715, end: 20110721
  3. MICAFUNGIN INJECTION [Suspect]
     Indication: BRONCHOPULMONARY ASPERGILLOSIS
     Dosage: 100 MG, UID/QD
     Route: 042
     Dates: start: 20110715, end: 20110722
  4. MICAFUNGIN INJECTION [Suspect]
     Indication: INFECTIOUS DISEASE CARRIER
  5. MEROPENEM [Concomitant]
     Dosage: UNK G, QID
     Route: 065
     Dates: start: 20110715, end: 20110721
  6. PANTOPRAZOLE [Concomitant]
     Dosage: UNK
     Route: 065
     Dates: start: 20110715, end: 20110723
  7. DIPIDOLOR [Concomitant]
     Dosage: UNK
     Route: 065
     Dates: start: 20110715, end: 20110723
  8. MICAFUNGIN INJECTION [Suspect]
     Indication: GASTROINTESTINAL SURGERY
  9. LINEZOLID [Concomitant]
     Dosage: 600 MG, BID
     Route: 042
     Dates: start: 20110713, end: 20110722
  10. ENOXAPARIN SODIUM [Concomitant]
     Indication: THROMBOSIS PROPHYLAXIS
     Dosage: 40 MG, BID
     Route: 058
     Dates: start: 20110713, end: 20110722
  11. MICAFUNGIN INJECTION [Suspect]
     Indication: CANDIDIASIS
  12. MICAFUNGIN INJECTION [Suspect]
  13. MEROPENEM [Concomitant]
     Dosage: 0.5 G, QID
     Route: 042
     Dates: start: 20110713, end: 20110722
  14. MICAFUNGIN INJECTION [Suspect]
     Indication: ASPERGILLOSIS

REACTIONS (1)
  - CEREBRAL HAEMORRHAGE [None]
